FAERS Safety Report 11861520 (Version 1)
Quarter: 2015Q4

REPORT INFORMATION
  Report Type: Spontaneous
  Country: TR (occurrence: TR)
  Receive Date: 20151222
  Receipt Date: 20151222
  Transmission Date: 20160305
  Serious: Yes (Other)
  Sender: FDA-Public Use
  Company Number: TR-MYLANLABS-2015M1046010

PATIENT

DRUGS (1)
  1. ISOTRETINOIN [Suspect]
     Active Substance: ISOTRETINOIN
     Indication: ACNE
     Route: 065

REACTIONS (2)
  - Cerebral infarction [Recovering/Resolving]
  - Cerebral venous thrombosis [Recovering/Resolving]
